FAERS Safety Report 4739143-1 (Version None)
Quarter: 2005Q3

REPORT INFORMATION
  Report Type: 
  Country: None (occurrence: None)
  Receive Date: 20050810
  Receipt Date: 20050425
  Transmission Date: 20060218
  Serious: No
  Sender: FDA-Public Use
  Company Number: US-GLAXOSMITHKLINE-A0555567A

PATIENT
  Age: 48 Year
  Sex: Female

DRUGS (3)
  1. PAXIL CR [Suspect]
     Indication: DEPRESSION
     Dosage: 25MG PER DAY
     Route: 048
     Dates: start: 20050308, end: 20050417
  2. ASACOL [Concomitant]
  3. CLONAZEPAM [Concomitant]

REACTIONS (8)
  - FACE OEDEMA [None]
  - HEADACHE [None]
  - INSOMNIA [None]
  - IRRITABILITY [None]
  - LOCAL SWELLING [None]
  - PRURITUS [None]
  - RASH [None]
  - SWELLING FACE [None]
